FAERS Safety Report 7806453-0 (Version None)
Quarter: 2011Q4

REPORT INFORMATION
  Report Type: 
  Country: None (occurrence: None)
  Receive Date: 20111011
  Receipt Date: 20111003
  Transmission Date: 20120403
  Serious: Yes (Other)
  Sender: FDA-Public Use
  Company Number: US-PFIZER INC-2011235818

PATIENT
  Sex: Male
  Weight: 79.365 kg

DRUGS (4)
  1. VERAPAMIL HYDROCHLORIDE [Concomitant]
     Indication: ATRIAL FIBRILLATION
  2. PREDNISONE [Suspect]
     Dosage: UNK
  3. VERAPAMIL HYDROCHLORIDE [Concomitant]
     Indication: HYPERTENSION
     Dosage: UNK
  4. LYRICA [Suspect]
     Indication: NEURALGIA
     Dosage: 75 MG, 2X/DAY
     Route: 048
     Dates: start: 20110913, end: 20110930

REACTIONS (3)
  - SWELLING FACE [None]
  - JOINT SWELLING [None]
  - BLOOD BLISTER [None]
